FAERS Safety Report 14166396 (Version 1)
Quarter: 2017Q4

REPORT INFORMATION
  Report Type: Spontaneous
  Country: US (occurrence: None)
  Receive Date: 20171106
  Receipt Date: 20171106
  Transmission Date: 20180321
  Serious: Yes (Hospitalization)
  Sender: FDA-Public Use
  Company Number: None

PATIENT
  Age: 59 Year
  Sex: Female

DRUGS (8)
  1. METFORMIN [Concomitant]
     Active Substance: METFORMIN HYDROCHLORIDE
  2. ALPRAZOL [Concomitant]
  3. JANUVIA [Concomitant]
     Active Substance: SITAGLIPTIN PHOSPHATE
  4. COUMADIN [Concomitant]
     Active Substance: WARFARIN SODIUM
  5. ATENOLOL. [Concomitant]
     Active Substance: ATENOLOL
  6. HYDROCHLOROT [Concomitant]
     Active Substance: HYDROCHLOROTHIAZIDE
  7. SUTENT [Suspect]
     Active Substance: SUNITINIB MALATE
     Indication: METASTASIS
     Route: 048
     Dates: start: 20171019
  8. NAPROXEN. [Concomitant]
     Active Substance: NAPROXEN

REACTIONS (1)
  - Pyrexia [None]

NARRATIVE: CASE EVENT DATE: 20171104
